FAERS Safety Report 4928408-6 (Version None)
Quarter: 2006Q1

REPORT INFORMATION
  Report Type: 
  Country: None (occurrence: None)
  Receive Date: 20060223
  Receipt Date: 20060210
  Transmission Date: 20060701
  Serious: Yes (Other)
  Sender: FDA-Public Use
  Company Number: 200610140BNE

PATIENT
  Age: 56 Year
  Sex: Male
  Weight: 76.2043 kg

DRUGS (2)
  1. LEVITRA [Suspect]
     Indication: ERECTILE DYSFUNCTION
     Dosage: PRN,
     Dates: start: 20040101
  2. VIAGRA [Suspect]
     Dates: start: 20000101, end: 20010101

REACTIONS (3)
  - IMMUNE SYSTEM DISORDER [None]
  - INFLUENZA [None]
  - NASOPHARYNGITIS [None]
